FAERS Safety Report 5646720-2 (Version None)
Quarter: 2008Q1

REPORT INFORMATION
  Report Type: 
  Country: None (occurrence: None)
  Receive Date: 20080131
  Receipt Date: 20071226
  Transmission Date: 20080703
  Serious: No
  Sender: FDA-Public Use
  Company Number: 163-21880-07111686

PATIENT
  Age: 73 Year
  Sex: Male

DRUGS (3)
  1. REVLIMID [Suspect]
     Indication: MULTIPLE MYELOMA
     Dosage: 24 MG, DAILY FOR 21 DAYS, ORAL ; 15 MG, DAILY FOR 21 DAYS, ORAL
     Route: 048
     Dates: start: 20061120, end: 20070601
  2. REVLIMID [Suspect]
     Indication: MULTIPLE MYELOMA
     Dosage: 24 MG, DAILY FOR 21 DAYS, ORAL ; 15 MG, DAILY FOR 21 DAYS, ORAL
     Route: 048
     Dates: start: 20070625
  3. COUMADIN [Concomitant]

REACTIONS (1)
  - URINARY BLADDER POLYP [None]
